FAERS Safety Report 9825201 (Version 1)
Quarter: 2014Q1

REPORT INFORMATION
  Report Type: Spontaneous
  Country: CH (occurrence: CH)
  Receive Date: 20140117
  Receipt Date: 20140117
  Transmission Date: 20141002
  Serious: Yes (Hospitalization, Other)
  Sender: FDA-Public Use
  Company Number: PHHY2014CH003222

PATIENT
  Age: 27 Year
  Sex: Female

DRUGS (12)
  1. SANDIMMUN [Suspect]
     Dosage: 100 MG, BID
     Dates: start: 200712, end: 200805
  2. SANDIMMUN [Interacting]
     Dosage: 100 MG, BID
  3. TACROLIMUS [Interacting]
     Indication: SLEEP DISORDER
     Dates: start: 200805, end: 200809
  4. TRACLEER//BOSENTAN [Interacting]
     Indication: RAYNAUD^S PHENOMENON
     Dates: start: 200812, end: 201007
  5. HUMIRA [Concomitant]
     Dates: start: 200801, end: 200805
  6. ORENCIA [Concomitant]
     Dates: start: 200810, end: 201006
  7. ACTEMRA [Concomitant]
     Dates: start: 201006, end: 201009
  8. PREDNISONE [Concomitant]
     Dosage: 7.5 MG, QD
  9. PANTOZOL [Concomitant]
     Dosage: 40 MG, BID
  10. ASPIRIN CARDIO [Concomitant]
     Dosage: 100 MG, QD
  11. CALCIMAGON D3 FORTE [Concomitant]
     Dosage: 1 DF, QD
  12. FERRUM HAUSMANN [Concomitant]
     Dosage: 1 DF, QD

REACTIONS (19)
  - Arterial occlusive disease [Unknown]
  - Sleep disorder [Unknown]
  - Hypersensitivity vasculitis [Unknown]
  - Tension headache [Unknown]
  - Paresis [Recovered/Resolved]
  - Muscle contractions involuntary [Unknown]
  - Sensory disturbance [Unknown]
  - Feeling cold [Unknown]
  - Skin discolouration [Unknown]
  - Hypoperfusion [Unknown]
  - Rash erythematous [Unknown]
  - Skin plaque [Unknown]
  - Capillary disorder [Unknown]
  - Muscle spasms [Unknown]
  - Myopathy [Unknown]
  - Hypochromic anaemia [Unknown]
  - Oedema peripheral [Unknown]
  - Drug interaction [Unknown]
  - Supraventricular extrasystoles [Unknown]
